FAERS Safety Report 6536032-7 (Version None)
Quarter: 2010Q1

REPORT INFORMATION
  Report Type: 
  Country: None (occurrence: None)
  Receive Date: 20100113
  Receipt Date: 20100111
  Transmission Date: 20100710
  Serious: Yes (Hospitalization)
  Sender: FDA-Public Use
  Company Number: IT-BRISTOL-MYERS SQUIBB COMPANY-14927891

PATIENT
  Age: 66 Year
  Sex: Female

DRUGS (7)
  1. COUMADIN [Suspect]
     Indication: CARDIAC VALVE PROSTHESIS USER
     Dosage: 1 DF= 1 POSOLOGIC UNIT
     Route: 048
     Dates: start: 20020101, end: 20091121
  2. ESIDRIX [Concomitant]
     Indication: ESSENTIAL HYPERTENSION
     Dosage: 25MG ORAL TABS-DOSAGE:1 POSOLOGIC UNITS
     Route: 048
  3. ISOPTIN [Concomitant]
     Indication: ATRIAL FIBRILLATION
     Dosage: 40MG ORAL TABS-DOSAGE:2 POSOLOGIC UNITS
     Route: 048
  4. LANOXIN [Concomitant]
     Indication: ATRIAL FIBRILLATION
     Dosage: .250MG ORAL TABS-DOSAGE:1 POSOLOGIC UNITS
     Route: 048
  5. ENAPREN [Concomitant]
     Indication: ESSENTIAL HYPERTENSION
     Dosage: 5MG ORAL TABS-DOSAGE:2 POSOLOGIC UNITS
     Route: 048
  6. LUVION [Concomitant]
     Indication: ESSENTIAL HYPERTENSION
     Dosage: 50MG ORAL TABS-DOSAGE:1 POSOLOGIC UNITS
     Route: 048
  7. ROSUVASTATIN CALCIUM [Concomitant]
     Indication: MIXED HYPERLIPIDAEMIA
     Dosage: 10MG ORAL TABS-DOSAGE:1 POSOLOGIC UNITS
     Route: 048

REACTIONS (2)
  - ANAEMIA [None]
  - HYPERTENSIVE CRISIS [None]
